FAERS Safety Report 6041753-9 (Version None)
Quarter: 2009Q1

REPORT INFORMATION
  Report Type: 
  Country: None (occurrence: None)
  Receive Date: 20090116
  Receipt Date: 20090108
  Transmission Date: 20090719
  Serious: Yes (Other)
  Sender: FDA-Public Use
  Company Number: US-PFIZER INC-2009153393

PATIENT
  Sex: Female

DRUGS (1)
  1. LYRICA [Suspect]
     Indication: FIBROMYALGIA
     Dosage: 75 MG, 2X/DAY
     Dates: start: 20080314, end: 20080301

REACTIONS (4)
  - APTYALISM [None]
  - LIP EXFOLIATION [None]
  - ORAL MUCOSAL EXFOLIATION [None]
  - SKIN EXFOLIATION [None]
